FAERS Safety Report 9955493 (Version 1)
Quarter: 2014Q1

REPORT INFORMATION
  Report Type: Report from Study
  Country: US (occurrence: US)
  Receive Date: 20140304
  Receipt Date: 20140304
  Transmission Date: 20141002
  Serious: No
  Sender: FDA-Public Use
  Company Number: US-ABBVIE-13P-163-1083455-00

PATIENT
  Age: 58 Year
  Sex: Female
  Weight: 59.02 kg

DRUGS (9)
  1. HUMIRA [Suspect]
     Indication: PSORIASIS
     Dates: start: 20130405
  2. DILANTIN [Concomitant]
     Indication: EPILEPSY
  3. SINEMET [Concomitant]
     Indication: PARKINSON^S DISEASE
  4. LISINOPRIL [Concomitant]
     Indication: BLOOD PRESSURE
  5. BYSTOLIC [Concomitant]
     Indication: BLOOD PRESSURE
  6. BENADRYL [Concomitant]
     Indication: SEASONAL ALLERGY
  7. COMBIVENT [Concomitant]
     Indication: ASTHMA
  8. ALBUTEROL [Concomitant]
     Indication: ASTHMA
     Route: 055
  9. STEROID [Concomitant]
     Route: 055

REACTIONS (3)
  - Wheezing [Not Recovered/Not Resolved]
  - Nasopharyngitis [Not Recovered/Not Resolved]
  - Malaise [Unknown]
